FAERS Safety Report 8787273 (Version 1)
Quarter: 2012Q4

REPORT INFORMATION
  Report Type: 
  Country: US (occurrence: US)
  Receive Date: 20120914
  Receipt Date: 20120914
  Transmission Date: 20130627
  Serious: Yes (Other)
  Sender: FDA-Public Use
  Company Number: US-AMGEN-USASP2012057315

PATIENT
  Sex: Female

DRUGS (1)
  1. XGEVA [Suspect]
     Indication: PROPHYLAXIS
     Dosage: UNK
     Dates: start: 20120727

REACTIONS (4)
  - Vertebroplasty [Unknown]
  - Dyspepsia [Unknown]
  - Nausea [Unknown]
  - Constipation [Unknown]
